FAERS Safety Report 7318723-3 (Version None)
Quarter: 2011Q1

REPORT INFORMATION
  Report Type: 
  Country: None (occurrence: None)
  Receive Date: 20110228
  Receipt Date: 20100513
  Transmission Date: 20110831
  Serious: No
  Sender: FDA-Public Use
  Company Number: A0838817A

PATIENT
  Age: 17 Year
  Sex: Male
  Weight: 81.8 kg

DRUGS (2)
  1. DEPAKOTE [Concomitant]
  2. SUMATRIPTAN SUCCINATE [Suspect]
     Indication: MIGRAINE
     Dosage: 4MG SINGLE DOSE
     Route: 058
     Dates: start: 20100105, end: 20100105

REACTIONS (8)
  - PAIN [None]
  - CHEST PAIN [None]
  - MUSCLE TIGHTNESS [None]
  - PAIN IN EXTREMITY [None]
  - CHEST DISCOMFORT [None]
  - PRODUCT QUALITY ISSUE [None]
  - FEELING ABNORMAL [None]
  - HYPERSENSITIVITY [None]
